FAERS Safety Report 5340607-0 (Version None)
Quarter: 2007Q2

REPORT INFORMATION
  Report Type: 
  Country: None (occurrence: None)
  Receive Date: 20070531
  Receipt Date: 20070519
  Transmission Date: 20071010
  Serious: Yes (Other)
  Sender: FDA-Public Use
  Company Number: US-PFIZER INC-2007040902

PATIENT
  Sex: Male
  Weight: 75 kg

DRUGS (7)
  1. CHANTIX [Suspect]
     Indication: SMOKING CESSATION THERAPY
  2. FORADIL [Interacting]
     Indication: ASTHMA
  3. COMBIVENT [Interacting]
     Indication: ASTHMA
  4. MONTELUKAST SODIUM [Interacting]
     Indication: ASTHMA
  5. UNIPHYL [Interacting]
     Indication: ASTHMA
  6. ALL OTHER THERAPEUTIC PRODUCTS [Interacting]
     Indication: ASTHMA
  7. OTHER ANTI-ASTHMATICS, INHALANTS [Interacting]
     Indication: ASTHMA

REACTIONS (4)
  - DRUG INEFFECTIVE [None]
  - DRUG INTERACTION [None]
  - DYSPNOEA [None]
  - WHEEZING [None]
